FAERS Safety Report 6417429-2 (Version None)
Quarter: 2009Q4

REPORT INFORMATION
  Report Type: 
  Country: None (occurrence: None)
  Receive Date: 20091028
  Receipt Date: 20090129
  Transmission Date: 20100525
  Serious: Yes (Other)
  Sender: FDA-Public Use
  Company Number: US-BAYER-200841238NA

PATIENT
  Age: 23 Year
  Sex: Female
  Weight: 93 kg

DRUGS (2)
  1. MIRENA [Suspect]
     Indication: CONTRACEPTION
     Dosage: CONTINUOUS
     Route: 015
     Dates: start: 20070920
  2. HYPERTENSION MEDICAIONS [Concomitant]
     Indication: HYPERTENSION

REACTIONS (5)
  - DEVICE DISLOCATION [None]
  - ECONOMIC PROBLEM [None]
  - MALAISE [None]
  - MEDICAL DEVICE COMPLICATION [None]
  - PREGNANCY TEST POSITIVE [None]
